FAERS Safety Report 18683824 (Version 1)
Quarter: 2020Q4

REPORT INFORMATION
  Report Type: Spontaneous
  Country: SA (occurrence: SA)
  Receive Date: 20201230
  Receipt Date: 20201230
  Transmission Date: 20210114
  Serious: No
  Sender: FDA-Public Use
  Company Number: SA-LUPIN PHARMACEUTICALS INC.-2020-06488

PATIENT
  Age: 29 Year
  Sex: Male

DRUGS (2)
  1. VORICONAZOLE. [Suspect]
     Active Substance: VORICONAZOLE
     Indication: SINUSITIS FUNGAL
     Dosage: UNK
     Route: 048
  2. VORICONAZOLE. [Suspect]
     Active Substance: VORICONAZOLE
     Dosage: UNK (TOPICAL APPLICATION, 3 DROPS IN THE LYING HEAD BACK POSITION, TWICE DAILY FOR 6 MONTHS)
     Route: 045

REACTIONS (2)
  - Product use issue [Unknown]
  - Off label use [Unknown]
